FAERS Safety Report 6314864-8 (Version None)
Quarter: 2009Q3

REPORT INFORMATION
  Report Type: 
  Country: None (occurrence: None)
  Receive Date: 20090817
  Receipt Date: 20090817
  Transmission Date: 20100115
  Serious: Yes (Other)
  Sender: FDA-Public Use
  Company Number: None

PATIENT
  Age: 86 Year
  Sex: Female
  Weight: 54.4316 kg

DRUGS (1)
  1. TIMOLOL .5% FALCON [Suspect]
     Indication: INTRAOCULAR PRESSURE INCREASED
     Dosage: ONE DROP IN EACH EYE EVERY MORNING
     Dates: start: 20090505, end: 20090814

REACTIONS (1)
  - EPISTAXIS [None]
